FAERS Safety Report 11465701 (Version 3)
Quarter: 2015Q3

REPORT INFORMATION
  Report Type: Report from Study
  Country: BR (occurrence: BR)
  Receive Date: 20150907
  Receipt Date: 20150910
  Transmission Date: 20151125
  Serious: Yes (Other)
  Sender: FDA-Public Use
  Company Number: PHHY2015BR105761

PATIENT
  Sex: Female
  Weight: 75 kg

DRUGS (5)
  1. DIOVAN [Suspect]
     Active Substance: VALSARTAN
     Indication: HYPERTENSION
     Dosage: 1 DF, BID (CONCENTRATION 160/12)
     Route: 065
  2. ANASTROZOLE. [Suspect]
     Active Substance: ANASTROZOLE
     Indication: PRODUCT USED FOR UNKNOWN INDICATION
     Dosage: UNK
     Route: 065
  3. VITAMIN D [Suspect]
     Active Substance: CHOLECALCIFEROL
     Indication: PRODUCT USED FOR UNKNOWN INDICATION
     Dosage: UNK
     Route: 065
  4. DIOVAN AMLO FIX [Suspect]
     Active Substance: AMLODIPINE\VALSARTAN
     Indication: HYPERTENSION
     Dosage: 1 DF, QD (STARTED AS 320/10 MG AND MAINTAINED AT 320/05 MG)
     Route: 065
  5. TAMOXIFEN [Suspect]
     Active Substance: TAMOXIFEN
     Indication: NEOPLASM PROPHYLAXIS
     Dosage: 2 DF, QD
     Route: 065
     Dates: start: 2012

REACTIONS (15)
  - Swelling [Unknown]
  - Endometriosis [Unknown]
  - Dyspnoea [Unknown]
  - Cough [Unknown]
  - Intestinal polyp [Unknown]
  - Body height below normal [Unknown]
  - Breast cancer [Unknown]
  - Haemorrhage [Unknown]
  - Arthritis [Not Recovered/Not Resolved]
  - Malaise [Unknown]
  - Emotional disorder [Unknown]
  - Feeling abnormal [Unknown]
  - Pain [Unknown]
  - Blood pressure inadequately controlled [Unknown]
  - Hypertension [Unknown]

NARRATIVE: CASE EVENT DATE: 2012
